FAERS Safety Report 8460148-1 (Version None)
Quarter: 2012Q2

REPORT INFORMATION
  Report Type: 
  Country: None (occurrence: None)
  Receive Date: 20120323
  Receipt Date: 20111129
  Transmission Date: 20120825
  Serious: Yes (Hospitalization)
  Sender: FDA-Public Use
  Company Number: 163-21880-11101674

PATIENT
  Age: 69 Year
  Sex: Male

DRUGS (5)
  1. REVLIMID [Suspect]
     Indication: MULTIPLE MYELOMA
     Dosage: 25 MG, 1 IN 1 D, PO ; 15 MG, 1 IN 1 D, PO ; 15 MG, 1 IN 1 D, PO ; 25 MG, DAILY X 21 DAYS, PO
     Route: 048
     Dates: start: 20090522, end: 20090701
  2. REVLIMID [Suspect]
     Indication: MULTIPLE MYELOMA
     Dosage: 25 MG, 1 IN 1 D, PO ; 15 MG, 1 IN 1 D, PO ; 15 MG, 1 IN 1 D, PO ; 25 MG, DAILY X 21 DAYS, PO
     Route: 048
     Dates: start: 20090709, end: 20090101
  3. REVLIMID [Suspect]
     Indication: MULTIPLE MYELOMA
     Dosage: 25 MG, 1 IN 1 D, PO ; 15 MG, 1 IN 1 D, PO ; 15 MG, 1 IN 1 D, PO ; 25 MG, DAILY X 21 DAYS, PO
     Route: 048
     Dates: start: 20100101, end: 20100101
  4. REVLIMID [Suspect]
     Indication: MULTIPLE MYELOMA
     Dosage: 25 MG, 1 IN 1 D, PO ; 15 MG, 1 IN 1 D, PO ; 15 MG, 1 IN 1 D, PO ; 25 MG, DAILY X 21 DAYS, PO
     Route: 048
     Dates: start: 20100501
  5. FINASTERIDE [Concomitant]

REACTIONS (1)
  - STAPHYLOCOCCAL SKIN INFECTION [None]
